FAERS Safety Report 7272028-8 (Version None)
Quarter: 2010Q4

REPORT INFORMATION
  Report Type: 
  Country: None (occurrence: None)
  Receive Date: 20101130
  Receipt Date: 20100127
  Transmission Date: 20110411
  Serious: Yes (Hospitalization, Other)
  Sender: FDA-Public Use
  Company Number: 2010SP006041

PATIENT
  Age: 41 Year
  Sex: Female
  Weight: 58.0604 kg

DRUGS (2)
  1. NUVARING [Suspect]
     Indication: MENOPAUSAL SYMPTOMS
     Dosage: VAG
     Route: 067
     Dates: start: 20080701, end: 20080901
  2. TYLENOL [Concomitant]

REACTIONS (7)
  - DEEP VEIN THROMBOSIS [None]
  - DEPRESSION [None]
  - EMOTIONAL DISORDER [None]
  - HEPATIC MASS [None]
  - MALLORY-WEISS SYNDROME [None]
  - PNEUMONITIS [None]
  - PULMONARY EMBOLISM [None]
